FAERS Safety Report 8874143 (Version 4)
Quarter: 2013Q1

REPORT INFORMATION
  Report Type: Spontaneous
  Country: FR (occurrence: FR)
  Receive Date: 20121031
  Receipt Date: 20130212
  Transmission Date: 20140127
  Serious: Yes (Hospitalization, Other)
  Sender: FDA-Public Use
  Company Number: FR-AMGEN-FRASP2012069109

PATIENT
  Age: 14 Year
  Sex: Male

DRUGS (3)
  1. ENBREL [Suspect]
     Indication: RHEUMATOID ARTHRITIS
     Dosage: 16 MG, WEEKLY
     Route: 058
     Dates: start: 201106
  2. ENBREL [Suspect]
     Dosage: 20 MG, WEEKLY
     Route: 058
  3. ENBREL [Suspect]
     Dosage: 50 MG, WEEKLY
     Route: 058
     Dates: start: 20120320

REACTIONS (4)
  - Respiratory disorder [Recovered/Resolved]
  - Tachycardia [Recovered/Resolved]
  - Dyspnoea [Unknown]
  - Asthma [Unknown]
